FAERS Safety Report 9663824 (Version 1)
Quarter: 2013Q4

REPORT INFORMATION
  Report Type: Spontaneous
  Country: US (occurrence: None)
  Receive Date: 20131030
  Receipt Date: 20131030
  Transmission Date: 20140711
  Serious: Yes (Life-Threatening, Hospitalization)
  Sender: FDA-Public Use
  Company Number: None

PATIENT
  Age: 70 Year
  Sex: Female
  Weight: 49.9 kg

DRUGS (8)
  1. BENICAR [Suspect]
     Indication: HYPERTENSION
     Dosage: 40 MG, 1 PILL, ONCE PER DAY, BY MOUTH
     Route: 048
     Dates: start: 201105, end: 201307
  2. SYNTHOID [Concomitant]
  3. CLORIDINE [Concomitant]
  4. BYSTOLIC [Concomitant]
  5. FOLGARD [Concomitant]
  6. CRESTOR [Concomitant]
  7. MULTIVITAMIN [Concomitant]
  8. OCCUVITE [Concomitant]

REACTIONS (2)
  - Weight decreased [None]
  - Diarrhoea [None]
